FAERS Safety Report 9913617 (Version 2)
Quarter: 2014Q2

REPORT INFORMATION
  Report Type: Spontaneous
  Country: US (occurrence: None)
  Receive Date: 20140218
  Receipt Date: 20140616
  Transmission Date: 20141212
  Serious: No
  Sender: FDA-Public Use
  Company Number: 2014-00029

PATIENT
  Age: 33 Year
  Sex: Female

DRUGS (3)
  1. ZICAM COLD REMEDY RAPIDMELTS [Suspect]
     Indication: NASOPHARYNGITIS
     Dosage: 1 RAPIDMELT
     Route: 048
     Dates: start: 20140206, end: 20140207
  2. ZICAM COLD REMEDY RAPIDMELTS [Suspect]
     Indication: INFLUENZA
     Dosage: 1 RAPIDMELT
     Route: 048
     Dates: start: 20140206, end: 20140207
  3. SYNTHROID [Concomitant]

REACTIONS (3)
  - Ageusia [None]
  - Glossodynia [None]
  - Somnolence [None]
